FAERS Safety Report 10599716 (Version 1)
Quarter: 2014Q4

REPORT INFORMATION
  Report Type: Spontaneous
  Country: GR (occurrence: GR)
  Receive Date: 20141121
  Receipt Date: 20141121
  Transmission Date: 20150529
  Serious: Yes (Hospitalization)
  Sender: FDA-Public Use
  Company Number: GR-PFIZER INC-2014318584

PATIENT
  Age: 59 Year
  Sex: Male

DRUGS (3)
  1. CARVEPEN [Suspect]
     Active Substance: CARVEDILOL
     Dosage: 6.25 MG, 2X/DAY
     Route: 065
  2. TRIATEC [Suspect]
     Active Substance: RAMIPRIL
     Dosage: 5 MG, 1X/DAY
     Route: 065
  3. SALOSPIR [Suspect]
     Active Substance: ASPIRIN\CAFFEINE
     Dosage: 100 MG, 1X/DAY
     Route: 065

REACTIONS (3)
  - Gait disturbance [Unknown]
  - Intermittent claudication [Unknown]
  - Fatigue [Unknown]
